FAERS Safety Report 9511165 (Version 1)
Quarter: 2013Q3

REPORT INFORMATION
  Report Type: Spontaneous
  Country: US (occurrence: None)
  Receive Date: 20130909
  Receipt Date: 20130909
  Transmission Date: 20140515
  Serious: Yes (Death)
  Sender: FDA-Public Use
  Company Number: None

PATIENT
  Age: 76 Year
  Sex: Female
  Weight: 54.43 kg

DRUGS (2)
  1. FOSAMAX [Suspect]
     Indication: FRACTURE
  2. FOSAMAX [Suspect]
     Indication: PROPHYLAXIS

REACTIONS (1)
  - Gastrointestinal disorder [None]
